FAERS Safety Report 12173196 (Version 2)
Quarter: 2016Q1

REPORT INFORMATION
  Report Type: Spontaneous
  Country: HR (occurrence: HR)
  Receive Date: 20160311
  Receipt Date: 20160321
  Transmission Date: 20160526
  Serious: Yes (Death, Other)
  Sender: FDA-Public Use
  Company Number: HR-SA-2016SA047294

PATIENT
  Age: 54 Year
  Sex: Male

DRUGS (4)
  1. TACROLIMUS. [Suspect]
     Active Substance: TACROLIMUS
     Indication: IMMUNOSUPPRESSANT DRUG THERAPY
     Route: 065
  2. EVEROLIMUS [Suspect]
     Active Substance: EVEROLIMUS
     Indication: IMMUNOSUPPRESSANT DRUG THERAPY
     Route: 065
  3. ALEMTUZUMAB [Suspect]
     Active Substance: ALEMTUZUMAB
     Indication: IMMUNOSUPPRESSANT DRUG THERAPY
     Route: 065
  4. RIFAMPICIN [Interacting]
     Active Substance: RIFAMPIN
     Indication: MYCOBACTERIUM AVIUM COMPLEX INFECTION
     Route: 065

REACTIONS (8)
  - Acinetobacter infection [Unknown]
  - Off label use [Unknown]
  - Septic shock [Fatal]
  - Pneumonia [Unknown]
  - Respiratory tract infection [Recovered/Resolved]
  - Mycobacterium avium complex infection [Recovered/Resolved]
  - Klebsiella infection [Recovered/Resolved]
  - Pseudomonas infection [Recovered/Resolved]
